FAERS Safety Report 5214282-X (Version None)
Quarter: 2007Q1

REPORT INFORMATION
  Report Type: 
  Country: None (occurrence: None)
  Receive Date: 20070116
  Receipt Date: 20070104
  Transmission Date: 20070707
  Serious: Yes (Hospitalization)
  Sender: FDA-Public Use
  Company Number: 2007PV027812

PATIENT
  Age: 64 Year
  Sex: Female
  Weight: 94.3482 kg

DRUGS (9)
  1. BYETTA [Suspect]
     Indication: DIABETES MELLITUS NON-INSULIN-DEPENDENT
     Dosage: 5 MCG; BID; SC
     Route: 058
     Dates: start: 20050101
  2. ACCUPRIL [Concomitant]
  3. TRICOR [Concomitant]
  4. AMARYL [Concomitant]
  5. E2, E3, AND P4 [Concomitant]
  6. GLUCOPHAGE [Concomitant]
  7. PROPOXYPHENE HYDROCHLORIDE [Concomitant]
  8. PRECOSE [Concomitant]
  9. IBUPROFEN [Concomitant]

REACTIONS (8)
  - DIARRHOEA [None]
  - ERUCTATION [None]
  - FLATULENCE [None]
  - FREQUENT BOWEL MOVEMENTS [None]
  - HYPOTENSION [None]
  - INFECTION [None]
  - PHARMACEUTICAL PRODUCT COMPLAINT [None]
  - WEIGHT DECREASED [None]
